FAERS Safety Report 8199146-4 (Version None)
Quarter: 2012Q1

REPORT INFORMATION
  Report Type: 
  Country: None (occurrence: None)
  Receive Date: 20120309
  Receipt Date: 20120228
  Transmission Date: 20120608
  Serious: Yes (Hospitalization)
  Sender: FDA-Public Use
  Company Number: JP-AMGEN-JPNCT2011013565

PATIENT
  Age: 66 Year
  Sex: Female
  Weight: 35 kg

DRUGS (17)
  1. OXALIPLATIN [Suspect]
     Indication: COLORECTAL CANCER
     Route: 041
     Dates: start: 20100909, end: 20101202
  2. FLUOROURACIL [Suspect]
     Route: 041
     Dates: start: 20100909, end: 20101216
  3. CALCIUM CARBONATE [Concomitant]
     Indication: PROPHYLAXIS
     Route: 041
     Dates: start: 20100909, end: 20101202
  4. MAGNESOL [Concomitant]
     Indication: PROPHYLAXIS
     Route: 041
     Dates: start: 20100909, end: 20101202
  5. VOALLA [Concomitant]
     Indication: PROPHYLAXIS
     Route: 062
     Dates: start: 20101001, end: 20101228
  6. PRORENAL [Concomitant]
     Indication: PERIPHERAL ARTERIAL OCCLUSIVE DISEASE
     Route: 048
  7. PANITUMUMAB [Suspect]
     Indication: COLORECTAL CANCER
     Dosage: 6 MG/KG, Q2WK
     Route: 041
     Dates: start: 20100909, end: 20101104
  8. FLUOROURACIL [Suspect]
     Indication: COLORECTAL CANCER
     Route: 040
     Dates: start: 20100909, end: 20101104
  9. LEUCOVORIN CALCIUM [Suspect]
     Indication: COLORECTAL CANCER
     Route: 041
     Dates: start: 20100909, end: 20101216
  10. CLOBETASOL PROPIONATE [Concomitant]
     Indication: PROPHYLAXIS
     Route: 062
     Dates: start: 20101118, end: 20101228
  11. PANITUMUMAB [Suspect]
     Dosage: UNK UNK, Q2WK
     Route: 041
     Dates: start: 20101118, end: 20101228
  12. MINOCYCLINE HCL [Suspect]
     Indication: PROPHYLAXIS
     Route: 048
     Dates: start: 20101228, end: 20101228
  13. DEXAMETHASONE SODIUM PHOSPHATE [Concomitant]
     Indication: PROPHYLAXIS OF NAUSEA AND VOMITING
     Route: 041
     Dates: start: 20100909, end: 20101216
  14. HIRUDOID [Concomitant]
     Indication: PROPHYLAXIS
     Route: 062
     Dates: start: 20100908, end: 20110117
  15. CORTICOSTEROIDS [Concomitant]
     Indication: PROPHYLAXIS
     Route: 065
  16. GRANISETRON [Concomitant]
     Indication: PROPHYLAXIS OF NAUSEA AND VOMITING
     Route: 041
     Dates: start: 20100909, end: 20101216
  17. ARIMIDEX [Concomitant]
     Indication: CANCER HORMONAL THERAPY
     Route: 048

REACTIONS (2)
  - DERMATITIS ACNEIFORM [None]
  - INTERSTITIAL LUNG DISEASE [None]
